FAERS Safety Report 11428760 (Version 2)
Quarter: 2015Q3

REPORT INFORMATION
  Report Type: Spontaneous
  Country: US (occurrence: US)
  Receive Date: 20150828
  Receipt Date: 20150911
  Transmission Date: 20151125
  Serious: No
  Sender: FDA-Public Use
  Company Number: US-BAYER-2015-410276

PATIENT
  Age: 67 Year
  Sex: Female
  Weight: 48.98 kg

DRUGS (1)
  1. MIRALAX [Suspect]
     Active Substance: POLYETHYLENE GLYCOL 3350
     Indication: CONSTIPATION
     Dosage: 1 DF, QD
     Route: 048
     Dates: start: 20150823

REACTIONS (3)
  - Tooth fracture [Not Recovered/Not Resolved]
  - Drug ineffective [None]
  - Product physical issue [None]

NARRATIVE: CASE EVENT DATE: 20150823
